FAERS Safety Report 15395628 (Version 3)
Quarter: 2018Q4

REPORT INFORMATION
  Report Type: Spontaneous
  Country: US (occurrence: US)
  Receive Date: 20180918
  Receipt Date: 20181026
  Transmission Date: 20190204
  Serious: Yes (Hospitalization, Other)
  Sender: FDA-Public Use
  Company Number: US-JNJFOC-20180907688

PATIENT
  Age: 81 Year
  Sex: Female

DRUGS (10)
  1. FOLVITE [Concomitant]
     Active Substance: FOLIC ACID
     Route: 048
  2. LANTUS [Concomitant]
     Active Substance: INSULIN GLARGINE
     Route: 058
  3. COLLAGENASE SANTYL [Concomitant]
     Active Substance: COLLAGENASE CLOSTRIDIUM HISTOLYTICUM
     Dosage: 250 UNIT/GRAM APPLIED TO CLEANSED AFFECTED AREA
     Route: 061
  4. PRILOSEC [Concomitant]
     Active Substance: OMEPRAZOLE MAGNESIUM
     Indication: DYSPEPSIA
     Dosage: AS NEEDED
     Route: 048
  5. XARELTO [Suspect]
     Active Substance: RIVAROXABAN
     Indication: DEEP VEIN THROMBOSIS
     Dosage: WITH THE EVENING MEAL
     Route: 048
     Dates: end: 201808
  6. CALAMINE [Concomitant]
     Active Substance: CALAMINE\FERRIC OXIDE RED\ZINC OXIDE
     Dosage: 0.44-20.6 % APPLIED TO AFFECTED AREA
     Route: 061
  7. ONDANSETRON [Concomitant]
     Active Substance: ONDANSETRON
     Dosage: 1 TABLET AS NEEDED
     Route: 048
  8. TYLENOL [Concomitant]
     Active Substance: ACETAMINOPHEN
     Dosage: 2 TABLETS (650 MG) EVERY 4 HOURS AS NEEDED
     Route: 048
  9. MIRALAX [Concomitant]
     Active Substance: POLYETHYLENE GLYCOL 3350
     Dosage: TAKE 17 GRAM MIXED WITH 8 OZ. WATER, JUICE, SODA, COFFEE OR TEA EVERY 48 HOURS AS NEEDED
     Route: 048
  10. SENNA [Concomitant]
     Active Substance: SENNA LEAF\SENNOSIDES\SENNOSIDES A AND B
     Indication: CONSTIPATION
     Dosage: 2 TABLETS AS NEEDED
     Route: 048

REACTIONS (3)
  - Treatment failure [Unknown]
  - Deep vein thrombosis [Not Recovered/Not Resolved]
  - Dyspnoea exertional [Recovered/Resolved]
